FAERS Safety Report 6366306-4 (Version None)
Quarter: 2009Q3

REPORT INFORMATION
  Report Type: 
  Country: None (occurrence: None)
  Receive Date: 20090921
  Receipt Date: 20090819
  Transmission Date: 20100115
  Serious: No
  Sender: FDA-Public Use
  Company Number: US-BAYER-200927149NA

PATIENT
  Age: 75 Year
  Sex: Male

DRUGS (3)
  1. LEVITRA [Suspect]
     Indication: ERECTILE DYSFUNCTION
  2. BENICAR [Concomitant]
  3. TOPROL-XL [Concomitant]

REACTIONS (1)
  - ERECTILE DYSFUNCTION [None]
